FAERS Safety Report 11309079 (Version 4)
Quarter: 2017Q1

REPORT INFORMATION
  Report Type: Spontaneous
  Country: US (occurrence: US)
  Receive Date: 20150724
  Receipt Date: 20170222
  Transmission Date: 20170428
  Serious: Yes (Death, Hospitalization, Other)
  Sender: FDA-Public Use
  Company Number: US-PFIZER INC-2015244977

PATIENT
  Age: 77 Year
  Sex: Female
  Weight: 118 kg

DRUGS (26)
  1. XIFAXAN [Concomitant]
     Active Substance: RIFAXIMIN
     Dosage: 550 MG, 2X/DAY
  2. LORAZEPAM. [Concomitant]
     Active Substance: LORAZEPAM
     Dosage: 0.5 MG, UNK (0.5 MG TABLET, EVERY 4 HOURS AS NEEDED)
  3. LASIX [Concomitant]
     Active Substance: FUROSEMIDE
     Indication: HEPATIC CIRRHOSIS
     Dosage: 20 MG, 1X/DAY
     Route: 048
  4. KRISTALOSE [Concomitant]
     Active Substance: LACTULOSE
     Dosage: 40 MG, DAILY (2 PACKS DAILY)
  5. SPIRIVA [Concomitant]
     Active Substance: TIOTROPIUM BROMIDE MONOHYDRATE
     Indication: CHRONIC OBSTRUCTIVE PULMONARY DISEASE
     Dosage: 1 DF, DAILY
     Route: 055
  6. TRAMADOL HYDROCHLORIDE. [Concomitant]
     Active Substance: TRAMADOL HYDROCHLORIDE
     Dosage: 50 MG, UNK (50 MG TABLET 1 TABLET, AS NEEDED EVERY 4-6 HOURS)
  7. TUMS [Concomitant]
     Active Substance: CALCIUM CARBONATE
     Dosage: 100 MG, AS NEEDED
     Route: 048
  8. TYLENOL [Concomitant]
     Active Substance: ACETAMINOPHEN
     Indication: PAIN
     Dosage: 325 MG, AS NEEDED
  9. XOPENEX [Concomitant]
     Active Substance: LEVALBUTEROL HYDROCHLORIDE
     Dosage: UNK
  10. LEVALBUTEROL HCL [Concomitant]
     Active Substance: LEVALBUTEROL HYDROCHLORIDE
     Indication: CHRONIC OBSTRUCTIVE PULMONARY DISEASE
     Dosage: UNK, 3X/DAY
  11. QNASL [Concomitant]
     Active Substance: BECLOMETHASONE DIPROPIONATE
     Indication: RHINITIS ALLERGIC
     Dosage: 2 DF, 1X/DAY (2 PUFFS IN EACH NOSTRIL, ONCE A DAY)
  12. BENICAR [Concomitant]
     Active Substance: OLMESARTAN MEDOXOMIL
     Dosage: 40 MG, DAILY
     Dates: end: 20150814
  13. KRISTALOSE [Concomitant]
     Active Substance: LACTULOSE
     Indication: HEPATIC CIRRHOSIS
     Dosage: 20 MG, 4 PKS A DAY
  14. XIFAXAN [Concomitant]
     Active Substance: RIFAXIMIN
     Dosage: 200 MG, DAILY
  15. VITAMIN D [Concomitant]
     Active Substance: CHOLECALCIFEROL
     Dosage: 50000 IU, UNK
  16. AMLODIPINE BESYLATE. [Concomitant]
     Active Substance: AMLODIPINE BESYLATE
     Dosage: 5 MG, 1X/DAY
  17. AMLODIPINE [Concomitant]
     Active Substance: AMLODIPINE BESYLATE
     Indication: ABDOMINAL DISCOMFORT
     Dosage: 5 MG, 1X/DAY
  18. LEVOTHYROXINE SODIUM. [Concomitant]
     Active Substance: LEVOTHYROXINE SODIUM
     Dosage: .075 MG, UNK
  19. TUMS [Concomitant]
     Active Substance: CALCIUM CARBONATE
     Indication: GASTROOESOPHAGEAL REFLUX DISEASE
     Dosage: 500 MG, AS NEEDED
     Route: 048
  20. BENADRYL [Concomitant]
     Active Substance: DIPHENHYDRAMINE HYDROCHLORIDE
     Indication: RHINITIS ALLERGIC
     Dosage: 25 MG, DAILY
     Route: 048
  21. NASONEX [Concomitant]
     Active Substance: MOMETASONE FUROATE
     Indication: RHINITIS ALLERGIC
     Dosage: UNK (50 MCG/ ACT, 2 SPRAYS IN EACH NOSTRIL)
  22. REVATIO [Suspect]
     Active Substance: SILDENAFIL CITRATE
     Indication: PULMONARY ARTERIAL HYPERTENSION
     Dosage: 20 MG, 3X/DAY
     Route: 048
     Dates: start: 2012
  23. OMEPRAZOLE. [Concomitant]
     Active Substance: OMEPRAZOLE
     Indication: GASTROOESOPHAGEAL REFLUX DISEASE
     Dosage: 40 MG, 1X/DAY
     Route: 048
  24. TRAMADOL. [Concomitant]
     Active Substance: TRAMADOL
     Indication: BACK PAIN
     Dosage: 50 MG, AS NEEDED
  25. SPIRONOLACTONE. [Concomitant]
     Active Substance: SPIRONOLACTONE
     Dosage: 25 MG, AS NEEDED
  26. VENTOLIN HFA [Concomitant]
     Active Substance: ALBUTEROL SULFATE
     Indication: CHRONIC OBSTRUCTIVE PULMONARY DISEASE
     Dosage: 2 DF, UNK (2 PUFFS EVERY 6 HOURS AS NEEDED)

REACTIONS (24)
  - Death [Fatal]
  - Contusion [Unknown]
  - Sneezing [Unknown]
  - Muscle spasms [Unknown]
  - Sinus congestion [Unknown]
  - Insomnia [Unknown]
  - Joint stiffness [Unknown]
  - Chest pain [Unknown]
  - Ear pain [Unknown]
  - Lacrimation increased [Unknown]
  - Fatigue [Unknown]
  - Dyspnoea [Unknown]
  - Carpal tunnel syndrome [Unknown]
  - Wheezing [Unknown]
  - Nausea [Unknown]
  - Arthralgia [Unknown]
  - Asthenia [Unknown]
  - Cerebrovascular accident [Recovered/Resolved]
  - Hypoacusis [Unknown]
  - Dysphagia [Unknown]
  - Dizziness [Unknown]
  - Productive cough [Unknown]
  - Myalgia [Unknown]
  - Anxiety [Unknown]

NARRATIVE: CASE EVENT DATE: 20150713
